FAERS Safety Report 7796275-1 (Version None)
Quarter: 2011Q4

REPORT INFORMATION
  Report Type: 
  Country: None (occurrence: None)
  Receive Date: 20111004
  Receipt Date: 20110927
  Transmission Date: 20120403
  Serious: Yes (Hospitalization, Other)
  Sender: FDA-Public Use
  Company Number: US-SANOFI-AVENTIS-2011SA063497

PATIENT
  Age: 89 Year
  Sex: Female
  Weight: 53 kg

DRUGS (6)
  1. LORAZEPAM [Concomitant]
  2. ANTIHYPERTENSIVES [Concomitant]
  3. PANTOPRAZOLE [Concomitant]
     Indication: ULCER
  4. PLAVIX [Suspect]
     Route: 048
     Dates: start: 20080101
  5. VITAMIN TAB [Concomitant]
  6. PANTOPRAZOLE [Concomitant]

REACTIONS (15)
  - OEDEMA PERIPHERAL [None]
  - HAEMORRHAGE [None]
  - SWELLING [None]
  - BALANCE DISORDER [None]
  - HYPONATRAEMIA [None]
  - CARDIAC PACEMAKER INSERTION [None]
  - CARDIAC DISORDER [None]
  - FALL [None]
  - ARTHRALGIA [None]
  - LOSS OF CONSCIOUSNESS [None]
  - WEIGHT INCREASED [None]
  - RESPIRATORY ARREST [None]
  - LYMPHOEDEMA [None]
  - SKIN DISCOLOURATION [None]
  - DYSPNOEA [None]
